FAERS Safety Report 25523617 (Version 3)
Quarter: 2025Q3

REPORT INFORMATION
  Report Type: Report from Study
  Country: US (occurrence: US)
  Receive Date: 20250707
  Receipt Date: 20250901
  Transmission Date: 20251021
  Serious: No
  Sender: SUNOVION
  Company Number: US-SMPA-2025SPA007503AA

PATIENT
  Age: 79 Year
  Sex: Male

DRUGS (11)
  1. ORGOVYX [Suspect]
     Active Substance: RELUGOLIX
     Indication: Prostate cancer
     Dosage: 360 MG, SINGLE
     Route: 048
     Dates: start: 202505, end: 202505
  2. ORGOVYX [Suspect]
     Active Substance: RELUGOLIX
     Dosage: 120 MG, QD
     Route: 048
     Dates: start: 202505, end: 20250812
  3. ASPIRIN [Concomitant]
     Active Substance: ASPIRIN
  4. OXYBUTYNIN [Concomitant]
     Active Substance: OXYBUTYNIN
  5. PREDNISOLONE [Concomitant]
     Active Substance: PREDNISOLONE
  6. ROSUVASTATIN [Concomitant]
     Active Substance: ROSUVASTATIN
  7. RYBELSUS [Concomitant]
     Active Substance: SEMAGLUTIDE
  8. TAMSULOSIN [Concomitant]
     Active Substance: TAMSULOSIN
  9. TELMISARTAN [Concomitant]
     Active Substance: TELMISARTAN
  10. TRAMADOL [Concomitant]
     Active Substance: TRAMADOL
  11. VYZULTA [Concomitant]
     Active Substance: LATANOPROSTENE BUNOD

REACTIONS (4)
  - Palpitations [Recovered/Resolved]
  - Dry mouth [Unknown]
  - Hot flush [Recovered/Resolved]
  - Urticaria [Recovered/Resolved]
